FAERS Safety Report 10409369 (Version 2)
Quarter: 2014Q3

REPORT INFORMATION
  Report Type: Spontaneous
  Country: BR (occurrence: BR)
  Receive Date: 20140826
  Receipt Date: 20140916
  Transmission Date: 20150326
  Serious: Yes (Hospitalization)
  Sender: FDA-Public Use
  Company Number: PHHY2014BR104791

PATIENT
  Age: 47 Year
  Sex: Male

DRUGS (5)
  1. CIPROFIBRATE [Interacting]
     Active Substance: CIPROFIBRATE
     Indication: HYPERTRIGLYCERIDAEMIA
     Dosage: 100 MG/DAY
  2. SIROLIMUS. [Interacting]
     Active Substance: SIROLIMUS
     Indication: IMMUNOSUPPRESSANT DRUG THERAPY
  3. RIBAVIRIN. [Concomitant]
     Active Substance: RIBAVIRIN
     Indication: VIRAL INFECTION
     Dates: start: 201301
  4. INTERFERON ALFA NOS [Interacting]
     Active Substance: INTERFERON ALFA-2A OR INTERFERON ALFA-2B
     Indication: VIRAL INFECTION
     Dates: start: 201301
  5. CICLOSPORIN [Suspect]
     Active Substance: CYCLOSPORINE
     Indication: IMMUNOSUPPRESSANT DRUG THERAPY

REACTIONS (7)
  - Rhabdomyolysis [Recovering/Resolving]
  - Renal failure acute [Unknown]
  - Myalgia [Recovering/Resolving]
  - Pyrexia [Recovering/Resolving]
  - Pain [Recovering/Resolving]
  - Fatigue [Recovering/Resolving]
  - Drug interaction [Unknown]
